FAERS Safety Report 19902680 (Version 1)
Quarter: 2021Q3

REPORT INFORMATION
  Report Type: Spontaneous
  Country: US (occurrence: US)
  Receive Date: 20210930
  Receipt Date: 20210930
  Transmission Date: 20211014
  Serious: No
  Sender: FDA-Public Use
  Company Number: US-BEH-2021136374

PATIENT
  Age: 49 Year
  Sex: Female

DRUGS (17)
  1. LASIX [Concomitant]
     Active Substance: FUROSEMIDE
  2. LEFLUNOMIDE. [Concomitant]
     Active Substance: LEFLUNOMIDE
  3. PLAQUENIL [Concomitant]
     Active Substance: HYDROXYCHLOROQUINE SULFATE
  4. HIZENTRA [Suspect]
     Active Substance: HUMAN IMMUNOGLOBULIN G
     Indication: HYPOGAMMAGLOBULINAEMIA
     Dosage: 10 MILLIGRAM, QW
     Route: 058
     Dates: start: 20190726
  5. CYMBALTA [Concomitant]
     Active Substance: DULOXETINE HYDROCHLORIDE
  6. SPIRONOLACTON [Concomitant]
     Active Substance: SPIRONOLACTONE
  7. CELEBREX [Concomitant]
     Active Substance: CELECOXIB
  8. LYRICA [Concomitant]
     Active Substance: PREGABALIN
  9. MULTIVITAMINS [VITAMINS NOS] [Concomitant]
     Active Substance: VITAMINS
  10. BENLYSTA [Concomitant]
     Active Substance: BELIMUMAB
  11. MAGNESIUM [Concomitant]
     Active Substance: MAGNESIUM
  12. EVOXAC [Concomitant]
     Active Substance: CEVIMELINE HYDROCHLORIDE
  13. POTASSIUM [Concomitant]
     Active Substance: POTASSIUM
  14. PROSCAR [Concomitant]
     Active Substance: FINASTERIDE
  15. KRILL OIL [Concomitant]
     Active Substance: DIETARY SUPPLEMENT\KRILL OIL
  16. NALTREXONE [NALTREXONE HYDROCHLORIDE] [Concomitant]
  17. VRAYLAR [Concomitant]
     Active Substance: CARIPRAZINE

REACTIONS (1)
  - Hordeolum [Not Recovered/Not Resolved]

NARRATIVE: CASE EVENT DATE: 20210921
